FAERS Safety Report 4931566-0 (Version None)
Quarter: 2006Q1

REPORT INFORMATION
  Report Type: 
  Country: None (occurrence: None)
  Receive Date: 20060303
  Receipt Date: 20060223
  Transmission Date: 20060701
  Serious: Yes (Other)
  Sender: FDA-Public Use
  Company Number: HK-JNJFOC-20060205646

PATIENT
  Age: 63 Year
  Sex: Female

DRUGS (4)
  1. KETOCONAZOLE [Suspect]
     Indication: FUNGAL SKIN INFECTION
  2. CETIRIZINE [Suspect]
     Indication: FUNGAL SKIN INFECTION
  3. HYPOGLYCEMICS [Concomitant]
     Route: 048
  4. ANTIHYPERTENSIVES [Concomitant]
     Route: 048

REACTIONS (2)
  - ELECTROCARDIOGRAM QT PROLONGED [None]
  - TORSADE DE POINTES [None]
